FAERS Safety Report 12186383 (Version 1)
Quarter: 2016Q1

REPORT INFORMATION
  Report Type: Spontaneous
  Country: PR (occurrence: PR)
  Receive Date: 20160317
  Receipt Date: 20160317
  Transmission Date: 20160526
  Serious: Yes (Other)
  Sender: FDA-Public Use
  Company Number: PR-FRESENIUS KABI-FK201601303

PATIENT
  Age: 53 Year
  Sex: Male
  Weight: 69.92 kg

DRUGS (5)
  1. ERBITUX [Concomitant]
     Active Substance: CETUXIMAB
     Route: 042
     Dates: start: 20151222, end: 20160121
  2. ERBITUX [Concomitant]
     Active Substance: CETUXIMAB
     Route: 042
     Dates: start: 20151222, end: 20160121
  3. FAMOTIDINE. [Concomitant]
     Active Substance: FAMOTIDINE
     Route: 042
     Dates: start: 20151222, end: 20160121
  4. ONDANSETRON [Concomitant]
     Active Substance: ONDANSETRON
     Route: 042
     Dates: start: 20151222, end: 20160121
  5. CARBOPLATIN (MANUFACTURER UNKNOWN) [Suspect]
     Active Substance: CARBOPLATIN
     Indication: LARYNGEAL CANCER
     Route: 042
     Dates: start: 20151222, end: 20160121

REACTIONS (3)
  - Erythema [Unknown]
  - Paraesthesia [Unknown]
  - Pruritus [Unknown]

NARRATIVE: CASE EVENT DATE: 20160121
